FAERS Safety Report 7386142-X (Version None)
Quarter: 2011Q1

REPORT INFORMATION
  Report Type: 
  Country: None (occurrence: None)
  Receive Date: 20110331
  Receipt Date: 20110321
  Transmission Date: 20110831
  Serious: No
  Sender: FDA-Public Use
  Company Number: US-B.I. PHARMACEUTICALS,INC./RIDGEFIELD-2011-BP-02689BP

PATIENT
  Sex: Female

DRUGS (8)
  1. LASIX [Concomitant]
     Dosage: 20 MG
  2. CARDIZEM [Concomitant]
     Dosage: 240 MG
  3. PRADAXA [Suspect]
     Indication: ATRIAL FIBRILLATION
     Dosage: 300 MG
     Route: 048
     Dates: start: 20100101
  4. PAQUENIL [Concomitant]
     Dosage: 400 MG
  5. DIOVAN [Concomitant]
     Dosage: 320 MG
  6. RECLAST [Concomitant]
  7. LANOXIN [Concomitant]
     Dosage: 125 MG
  8. PRADAXA [Suspect]
     Indication: ANTICOAGULANT THERAPY

REACTIONS (1)
  - ERUCTATION [None]
